FAERS Safety Report 5144127-8 (Version None)
Quarter: 2006Q4

REPORT INFORMATION
  Report Type: 
  Country: None (occurrence: None)
  Receive Date: 20061106
  Receipt Date: 20061031
  Transmission Date: 20070319
  Serious: Yes (Hospitalization)
  Sender: FDA-Public Use
  Company Number: AU-AMGEN-US198807

PATIENT
  Sex: Male

DRUGS (7)
  1. ARANESP [Suspect]
     Indication: RENAL FAILURE CHRONIC
     Route: 058
     Dates: start: 20051202, end: 20051220
  2. ASPIRIN [Concomitant]
  3. ATORVASTATIN CALCIUM [Concomitant]
  4. LEVOTHYROXINE SODIUM [Concomitant]
  5. FUROSEMIDE [Concomitant]
  6. MIRTAZAPINE [Concomitant]
  7. TIOTROPIUM BROMIDE [Concomitant]

REACTIONS (3)
  - DERMATITIS EXFOLIATIVE [None]
  - PRURITUS [None]
  - RASH MACULAR [None]
